FAERS Safety Report 9813946 (Version 2)
Quarter: 2014Q1

REPORT INFORMATION
  Report Type: Report from Study
  Country: TR (occurrence: TR)
  Receive Date: 20140113
  Receipt Date: 20140217
  Transmission Date: 20141002
  Serious: Yes (Other)
  Sender: FDA-Public Use
  Company Number: PHHY2014TR001493

PATIENT
  Age: 65 Year
  Sex: Male
  Weight: 90 kg

DRUGS (2)
  1. SANDOSTATIN LAR [Suspect]
     Indication: ACROMEGALY
     Dosage: 30 MG, ONCE EVERY 28 DAYS
     Route: 030
     Dates: start: 20060101
  2. SANDOSTATIN LAR [Suspect]
     Dosage: 30 MG, ONCE EVERY 28 DAYS
     Route: 030
     Dates: start: 20140102

REACTIONS (4)
  - Dementia [Not Recovered/Not Resolved]
  - Agitation [Recovered/Resolved]
  - Road traffic accident [Unknown]
  - Incorrect route of drug administration [Recovered/Resolved]
